FAERS Safety Report 21453528 (Version 1)
Quarter: 2022Q4

REPORT INFORMATION
  Report Type: Spontaneous
  Country: SE (occurrence: SE)
  Receive Date: 20221013
  Receipt Date: 20221013
  Transmission Date: 20230113
  Serious: Yes (Death, Hospitalization, Other)
  Sender: FDA-Public Use
  Company Number: SE-ROCHE-3191567

PATIENT
  Age: 62 Year
  Sex: Male
  Weight: 125.7 kg

DRUGS (15)
  1. RITUXIMAB [Suspect]
     Active Substance: RITUXIMAB
     Indication: Follicular lymphoma
     Dosage: 375 MG/M2, WEEKLY
     Route: 042
     Dates: start: 20211123, end: 20211123
  2. RITUXIMAB [Suspect]
     Active Substance: RITUXIMAB
     Dosage: 375 MG/M2
     Route: 042
     Dates: start: 20211207, end: 20211221
  3. RITUXIMAB [Suspect]
     Active Substance: RITUXIMAB
     Dosage: 375 MG/M2, WEEKLY
     Route: 042
     Dates: start: 20220104, end: 20220104
  4. EPCORITAMAB [Suspect]
     Active Substance: EPCORITAMAB
     Indication: Follicular lymphoma
     Dosage: 0.16 MG, DAILY (SUBSEQUENT DOSE ON 07DEC2021)
     Route: 058
     Dates: start: 20211123, end: 20211123
  5. EPCORITAMAB [Suspect]
     Active Substance: EPCORITAMAB
     Dosage: 0.8 MG, DAILY
     Route: 058
     Dates: start: 20211214, end: 20211214
  6. EPCORITAMAB [Suspect]
     Active Substance: EPCORITAMAB
     Dosage: 48 MG, DAILY
     Route: 058
     Dates: start: 20211221, end: 20220111
  7. LENALIDOMIDE [Suspect]
     Active Substance: LENALIDOMIDE
     Indication: Follicular lymphoma
     Dosage: 20 MG, DAILY
     Route: 048
     Dates: start: 20211123, end: 20211213
  8. LENALIDOMIDE [Suspect]
     Active Substance: LENALIDOMIDE
     Dosage: 20 MG, DAILY
     Route: 048
     Dates: start: 20210104, end: 20220111
  9. LENALIDOMIDE [Suspect]
     Active Substance: LENALIDOMIDE
     Dosage: 20 MG, DAILY
     Route: 048
     Dates: start: 20220114, end: 20220117
  10. BROMHEXINE\CLORPRENALINE\SULFAMETHOXAZOLE\TRIMETHOPRIM [Suspect]
     Active Substance: BROMHEXINE\CLORPRENALINE\SULFAMETHOXAZOLE\TRIMETHOPRIM
     Indication: Pneumocystis jirovecii infection
     Dosage: UNK (800/160 MG)
     Route: 048
     Dates: start: 20220117, end: 20220202
  11. ACIKLOVIR [Concomitant]
     Dosage: UNK
  12. ENALAPRIL [Concomitant]
     Active Substance: ENALAPRIL
     Dosage: UNK
  13. METFORMIN HYDROCHLORIDE [Concomitant]
     Active Substance: METFORMIN HYDROCHLORIDE
     Dosage: UNK
  14. SIMVASTATIN [Concomitant]
     Active Substance: SIMVASTATIN
     Dosage: UNK
  15. SITAGLIPTIN [Concomitant]
     Active Substance: SITAGLIPTIN
     Dosage: UNK

REACTIONS (5)
  - Neoplasm progression [Fatal]
  - Cytokine release syndrome [Recovered/Resolved]
  - Diarrhoea [Recovered/Resolved]
  - Pneumocystis jirovecii infection [Recovered/Resolved with Sequelae]
  - Dehydration [Recovered/Resolved]

NARRATIVE: CASE EVENT DATE: 20220111
